FAERS Safety Report 24561306 (Version 1)
Quarter: 2024Q4

REPORT INFORMATION
  Report Type: Spontaneous
  Country: US (occurrence: US)
  Receive Date: 20241029
  Receipt Date: 20241029
  Transmission Date: 20250114
  Serious: Yes (Disabling, Other)
  Sender: TEVA
  Company Number: US-TEVA-VS-3254520

PATIENT
  Age: 83 Year
  Sex: Female

DRUGS (1)
  1. METHOTREXATE [Suspect]
     Active Substance: METHOTREXATE
     Indication: Product used for unknown indication
     Route: 065
     Dates: start: 2019

REACTIONS (13)
  - Disability [Unknown]
  - Swelling of eyelid [Not Recovered/Not Resolved]
  - Malaise [Not Recovered/Not Resolved]
  - Reading disorder [Not Recovered/Not Resolved]
  - Condition aggravated [Not Recovered/Not Resolved]
  - Fear of falling [Not Recovered/Not Resolved]
  - Headache [Unknown]
  - Swelling face [Unknown]
  - Dizziness [Unknown]
  - Cognitive disorder [Not Recovered/Not Resolved]
  - Eye swelling [Not Recovered/Not Resolved]
  - Vision blurred [Not Recovered/Not Resolved]
  - Fear [Not Recovered/Not Resolved]

NARRATIVE: CASE EVENT DATE: 20241017
